FAERS Safety Report 10754720 (Version 1)
Quarter: 2015Q1

REPORT INFORMATION
  Report Type: Spontaneous
  Country: US (occurrence: None)
  Receive Date: 20150130
  Receipt Date: 20150130
  Transmission Date: 20150721
  Serious: Yes (Hospitalization)
  Sender: FDA-Public Use
  Company Number: None

PATIENT
  Age: 66 Year
  Sex: Male
  Weight: 97.6 kg

DRUGS (24)
  1. MIDAZOLAM [Suspect]
     Active Substance: MIDAZOLAM\MIDAZOLAM HYDROCHLORIDE
  2. MAGNESIUM SULFATE. [Concomitant]
     Active Substance: MAGNESIUM SULFATE
  3. KCL [Concomitant]
     Active Substance: POTASSIUM CHLORIDE
  4. LABETOLOL [Concomitant]
     Active Substance: LABETALOL HYDROCHLORIDE
  5. LACOSAMIDE [Concomitant]
     Active Substance: LACOSAMIDE
  6. SENNA SYRUP [Concomitant]
     Active Substance: SENNOSIDES
  7. NAPHOS [Concomitant]
  8. MILK OF MAGNESIA [Concomitant]
     Active Substance: MAGNESIUM HYDROXIDE
  9. KEPPRA [Concomitant]
     Active Substance: LEVETIRACETAM
  10. LANSOPRAZOLE. [Concomitant]
     Active Substance: LANSOPRAZOLE
  11. HYDRALAZINE [Concomitant]
     Active Substance: HYDRALAZINE HYDROCHLORIDE
  12. MIRALAX [Concomitant]
     Active Substance: POLYETHYLENE GLYCOL 3350
  13. HEPARIN [Concomitant]
     Active Substance: HEPARIN SODIUM
  14. LANTUS [Concomitant]
     Active Substance: INSULIN GLARGINE
  15. DEXTROSE 50% [Concomitant]
  16. ATROPINE [Concomitant]
     Active Substance: ATROPINE
  17. LOSARTAN [Concomitant]
     Active Substance: LOSARTAN
  18. TOPIRIMATE [Concomitant]
  19. MULTIVITS WITH MINERALS [Concomitant]
  20. REGULAR INSULIN [Concomitant]
     Active Substance: INSULIN NOS
  21. MIDAZOLAM [Concomitant]
     Active Substance: MIDAZOLAM\MIDAZOLAM HYDROCHLORIDE
  22. DOCUSATE [Concomitant]
     Active Substance: DOCUSATE
  23. CARVEDILOL. [Concomitant]
     Active Substance: CARVEDILOL
  24. CLONIDINE. [Concomitant]
     Active Substance: CLONIDINE

REACTIONS (4)
  - Alanine aminotransferase increased [None]
  - Aspartate aminotransferase increased [None]
  - Blood alkaline phosphatase increased [None]
  - Blood bilirubin increased [None]

NARRATIVE: CASE EVENT DATE: 20140924
